FAERS Safety Report 15937693 (Version 1)
Quarter: 2019Q1

REPORT INFORMATION
  Report Type: Spontaneous
  Country: US (occurrence: US)
  Receive Date: 20190208
  Receipt Date: 20190208
  Transmission Date: 20190417
  Serious: Yes (Disabling)
  Sender: FDA-Public Use
  Company Number: None

PATIENT
  Age: 52 Year
  Sex: Female
  Weight: 80.1 kg

DRUGS (1)
  1. PROGESTERONE 100 MG CAPSULES [Suspect]
     Active Substance: PROGESTERONE
     Indication: HORMONE REPLACEMENT THERAPY
     Dosage: ?          QUANTITY:30 CAPSULE(S);?
     Route: 048

REACTIONS (4)
  - Menstrual disorder [None]
  - Product substitution issue [None]
  - Abdominal pain [None]
  - Breast pain [None]

NARRATIVE: CASE EVENT DATE: 20190208
